FAERS Safety Report 19942314 (Version 1)
Quarter: 2021Q4

REPORT INFORMATION
  Report Type: Spontaneous
  Country: US (occurrence: US)
  Receive Date: 20211011
  Receipt Date: 20211011
  Transmission Date: 20220303
  Serious: Yes (Other)
  Sender: FDA-Public Use
  Company Number: None

PATIENT
  Age: 29 Year
  Sex: Female
  Weight: 75 kg

DRUGS (1)
  1. TOCILIZUMAB [Suspect]
     Active Substance: TOCILIZUMAB
     Indication: COVID-19
     Dosage: ?          OTHER FREQUENCY:ONCE;
     Route: 042
     Dates: start: 20210825, end: 20210825

REACTIONS (5)
  - Throat irritation [None]
  - Respiratory distress [None]
  - Cardiac arrest [None]
  - Oxygen saturation decreased [None]
  - Exposure during pregnancy [None]

NARRATIVE: CASE EVENT DATE: 20210825
